FAERS Safety Report 22026291 (Version 1)
Quarter: 2023Q1

REPORT INFORMATION
  Report Type: Report from Study
  Country: KR (occurrence: KR)
  Receive Date: 20230223
  Receipt Date: 20230223
  Transmission Date: 20230418
  Serious: Yes (Hospitalization, Other)
  Sender: FDA-Public Use
  Company Number: KR-TAKEDA-2023TUS018473

PATIENT
  Age: 45 Year
  Sex: Female
  Weight: 52 kg

DRUGS (47)
  1. VEDOLIZUMAB [Suspect]
     Active Substance: VEDOLIZUMAB
     Indication: Colitis ulcerative
     Dosage: 300 MILLIGRAM
     Route: 042
     Dates: start: 20211221, end: 20211221
  2. VEDOLIZUMAB [Suspect]
     Active Substance: VEDOLIZUMAB
     Dosage: 300 MILLIGRAM
     Route: 042
     Dates: start: 20220104, end: 20220104
  3. VEDOLIZUMAB [Suspect]
     Active Substance: VEDOLIZUMAB
     Dosage: 300 MILLIGRAM
     Route: 042
     Dates: start: 20220203, end: 20220203
  4. VEDOLIZUMAB [Suspect]
     Active Substance: VEDOLIZUMAB
     Dosage: 300 MILLIGRAM
     Route: 042
     Dates: start: 20220331, end: 20220331
  5. VEDOLIZUMAB [Suspect]
     Active Substance: VEDOLIZUMAB
     Dosage: 300 MILLIGRAM
     Route: 042
     Dates: start: 20220423, end: 20220423
  6. VEDOLIZUMAB [Suspect]
     Active Substance: VEDOLIZUMAB
     Dosage: 300 MILLIGRAM
     Route: 042
     Dates: start: 20220519, end: 20220519
  7. VEDOLIZUMAB [Suspect]
     Active Substance: VEDOLIZUMAB
     Dosage: 300 MILLIGRAM
     Route: 042
     Dates: start: 20220616, end: 20220616
  8. VEDOLIZUMAB [Suspect]
     Active Substance: VEDOLIZUMAB
     Dosage: 300 MILLIGRAM
     Route: 042
     Dates: start: 20220714, end: 20220714
  9. VEDOLIZUMAB [Suspect]
     Active Substance: VEDOLIZUMAB
     Dosage: 300 MILLIGRAM
     Route: 042
     Dates: start: 20220811, end: 20220811
  10. VEDOLIZUMAB [Suspect]
     Active Substance: VEDOLIZUMAB
     Dosage: 300 MILLIGRAM
     Route: 042
     Dates: start: 20220908, end: 20220908
  11. VEDOLIZUMAB [Suspect]
     Active Substance: VEDOLIZUMAB
     Dosage: 300 MILLIGRAM
     Route: 042
     Dates: start: 20221005, end: 20221005
  12. VEDOLIZUMAB [Suspect]
     Active Substance: VEDOLIZUMAB
     Dosage: 300 MILLIGRAM
     Route: 042
     Dates: start: 20221101, end: 20221101
  13. VEDOLIZUMAB [Suspect]
     Active Substance: VEDOLIZUMAB
     Dosage: 300 MILLIGRAM
     Route: 042
     Dates: start: 20221129, end: 20221129
  14. FEROBA YOU [Concomitant]
     Dosage: 256 MILLIGRAM, QD
     Route: 048
     Dates: start: 20210810, end: 20220901
  15. HYDROCORTISONE SODIUM SUCCINATE [Concomitant]
     Active Substance: HYDROCORTISONE SODIUM SUCCINATE
     Indication: Prophylaxis
     Dosage: 100 MILLIGRAM
     Route: 042
     Dates: start: 20220104, end: 20220203
  16. HYDROCORTISONE SODIUM SUCCINATE [Concomitant]
     Active Substance: HYDROCORTISONE SODIUM SUCCINATE
     Dosage: 70 MILLIGRAM, TID
     Route: 042
     Dates: start: 20220905, end: 20220908
  17. HYDROCORTISONE SODIUM SUCCINATE [Concomitant]
     Active Substance: HYDROCORTISONE SODIUM SUCCINATE
     Dosage: 60 MILLIGRAM, TID
     Route: 042
     Dates: start: 20220909, end: 20220911
  18. HYDROCORTISONE SODIUM SUCCINATE [Concomitant]
     Active Substance: HYDROCORTISONE SODIUM SUCCINATE
     Dosage: 50 MILLIGRAM, TID
     Route: 042
     Dates: start: 20220912, end: 20220912
  19. PENIRAMIN [Concomitant]
     Indication: Prophylaxis
     Dosage: 4 MILLIGRAM
     Route: 042
     Dates: start: 20220104, end: 20220203
  20. Venoferrum [Concomitant]
     Dosage: 200 MILLIGRAM
     Route: 042
     Dates: start: 20220423
  21. VITAMINS [Concomitant]
     Active Substance: VITAMINS
     Indication: Vitamin supplementation
     Dosage: 5 MILLIGRAM, QD
     Route: 042
     Dates: start: 20220902, end: 20220903
  22. FURTMAN [Concomitant]
     Indication: Mineral supplementation
     Dosage: .2 MILLILITER, QD
     Route: 042
     Dates: start: 20220902, end: 20220903
  23. KABITWIN PERI [Concomitant]
     Indication: Ovarian cyst ruptured
     Dosage: 1000 MILLILITER, QD
     Route: 042
     Dates: start: 20220902, end: 20220903
  24. KABITWIN PERI [Concomitant]
     Dosage: 1000 MILLILITER, QD
     Route: 042
     Dates: start: 20230124, end: 20230124
  25. PANTOPRAZOLE SODIUM [Concomitant]
     Active Substance: PANTOPRAZOLE SODIUM
     Indication: Prophylaxis
     Dosage: 40 MILLIGRAM, QD
     Route: 042
     Dates: start: 20220902, end: 20220903
  26. CEFTRIAXONE SODIUM [Concomitant]
     Active Substance: CEFTRIAXONE SODIUM
     Indication: Ovarian cyst ruptured
     Dosage: UNK UNK, QD
     Route: 042
     Dates: start: 20220902, end: 20220902
  27. CIPROFLOXACIN [Concomitant]
     Active Substance: CIPROFLOXACIN
     Indication: Ovarian cyst ruptured
     Dosage: 40 MILLIGRAM, BID
     Route: 042
     Dates: start: 20220903, end: 20220906
  28. PROFA [Concomitant]
     Indication: Ovarian cyst ruptured
     Dosage: 100 MILLILITER, QD
     Route: 042
     Dates: start: 20220904, end: 20220904
  29. PERIOLIMEL N4E [Concomitant]
     Indication: Ovarian cyst ruptured
     Dosage: UNK UNK, QD
     Route: 042
     Dates: start: 20220904, end: 20220913
  30. ULTRACET [Concomitant]
     Active Substance: ACETAMINOPHEN\TRAMADOL HYDROCHLORIDE
     Indication: Ovarian cyst ruptured
     Dosage: UNK UNK, BID
     Route: 048
     Dates: start: 20220905, end: 20220911
  31. CELEBREX [Concomitant]
     Active Substance: CELECOXIB
     Indication: Ovarian cyst ruptured
     Dosage: 200 MILLIGRAM, QD
     Route: 048
     Dates: start: 20220912, end: 20220919
  32. TRAMADOL HYDROCHLORIDE [Concomitant]
     Active Substance: TRAMADOL HYDROCHLORIDE
     Indication: Ovarian cyst ruptured
     Dosage: 50 MILLIGRAM
     Route: 042
     Dates: start: 20230123, end: 20230125
  33. ANYFEN [Concomitant]
     Indication: Ovarian cyst ruptured
     Dosage: 400 MILLIGRAM, TID
     Route: 048
     Dates: start: 20230125, end: 20230201
  34. ASACOL [Concomitant]
     Active Substance: MESALAMINE
     Dosage: 100 MILLIGRAM, BID
     Route: 054
     Dates: start: 20201215, end: 20220202
  35. ASACOL [Concomitant]
     Active Substance: MESALAMINE
     Dosage: 500 MILLIGRAM, BID
     Route: 054
     Dates: start: 20220203
  36. PREDNISOLONE [Concomitant]
     Active Substance: PREDNISOLONE
     Dosage: 30 MILLIGRAM, QD
     Route: 048
     Dates: start: 20220913, end: 20220919
  37. PREDNISOLONE [Concomitant]
     Active Substance: PREDNISOLONE
     Dosage: 27.5 MILLIGRAM, QD
     Route: 048
     Dates: start: 20220920, end: 20220926
  38. PREDNISOLONE [Concomitant]
     Active Substance: PREDNISOLONE
     Dosage: 25 MILLIGRAM, QD
     Route: 048
     Dates: start: 20220927, end: 20221004
  39. PREDNISOLONE [Concomitant]
     Active Substance: PREDNISOLONE
     Dosage: 22.5 MILLIGRAM, QD
     Route: 048
     Dates: start: 20221005, end: 20221011
  40. PREDNISOLONE [Concomitant]
     Active Substance: PREDNISOLONE
     Dosage: 20 MILLIGRAM, QD
     Route: 048
     Dates: start: 20221012, end: 20221018
  41. PREDNISOLONE [Concomitant]
     Active Substance: PREDNISOLONE
     Dosage: 17.5 MILLIGRAM, QD
     Route: 048
     Dates: start: 20221019, end: 20221025
  42. PREDNISOLONE [Concomitant]
     Active Substance: PREDNISOLONE
     Dosage: 15 MILLIGRAM, QD
     Route: 048
     Dates: start: 20221026, end: 20221101
  43. PREDNISOLONE [Concomitant]
     Active Substance: PREDNISOLONE
     Dosage: 12.5 MILLIGRAM, QD
     Route: 048
     Dates: start: 20221102, end: 20221108
  44. PREDNISOLONE [Concomitant]
     Active Substance: PREDNISOLONE
     Dosage: 10 MILLIGRAM, QD
     Route: 048
     Dates: start: 20221109, end: 20221115
  45. PREDNISOLONE [Concomitant]
     Active Substance: PREDNISOLONE
     Dosage: 7.5 MILLIGRAM, QD
     Route: 048
     Dates: start: 20221116, end: 20221122
  46. PREDNISOLONE [Concomitant]
     Active Substance: PREDNISOLONE
     Dosage: 5 MILLIGRAM, QD
     Route: 048
     Dates: start: 20221123, end: 20221129
  47. MEPERIDINE HYDROCHLORIDE [Concomitant]
     Active Substance: MEPERIDINE HYDROCHLORIDE
     Indication: Ovarian cyst ruptured
     Dosage: 25 MILLIGRAM
     Route: 042
     Dates: start: 20230124, end: 20230125

REACTIONS (1)
  - Ovarian cyst ruptured [Recovered/Resolved]

NARRATIVE: CASE EVENT DATE: 20230123
